FAERS Safety Report 13913176 (Version 1)
Quarter: 2017Q3

REPORT INFORMATION
  Report Type: Spontaneous
  Country: US (occurrence: US)
  Receive Date: 20170828
  Receipt Date: 20170828
  Transmission Date: 20171127
  Serious: No
  Sender: FDA-Public Use
  Company Number: US-ROCHE-1125325

PATIENT
  Age: 11 Year
  Sex: Female
  Weight: 38.2 kg

DRUGS (2)
  1. NUTROPIN AQ [Suspect]
     Active Substance: SOMATROPIN
     Indication: TURNER^S SYNDROME
     Dosage: 0.375MG/WK 2.4MG/INJ (0.48 CC/INJ)
     Route: 058
     Dates: start: 199812
  2. NUTROPIN AQ [Suspect]
     Active Substance: SOMATROPIN
     Indication: GROWTH HORMONE DEFICIENCY

REACTIONS (4)
  - Headache [Unknown]
  - Cough [Unknown]
  - Seasonal allergy [Unknown]
  - Night sweats [Unknown]

NARRATIVE: CASE EVENT DATE: 20000117
